FAERS Safety Report 25458013 (Version 2)
Quarter: 2025Q3

REPORT INFORMATION
  Report Type: Spontaneous
  Country: EU (occurrence: EU)
  Receive Date: 20250620
  Receipt Date: 20250704
  Transmission Date: 20251021
  Serious: Yes (Other)
  Sender: TEVA
  Company Number: EU-SANDOZ-SDZ2025AT036382

PATIENT
  Sex: Female

DRUGS (3)
  1. SUNITINIB [Suspect]
     Active Substance: SUNITINIB
     Indication: TP53 gene mutation
     Route: 065
  2. PAZOPANIB [Concomitant]
     Active Substance: PAZOPANIB
     Indication: Product used for unknown indication
     Route: 065
  3. IMATINIB [Suspect]
     Active Substance: IMATINIB
     Indication: TP53 gene mutation
     Route: 065

REACTIONS (3)
  - Gastrointestinal stromal tumour [Unknown]
  - Disease progression [Unknown]
  - TP53 gene mutation [Unknown]
